APPROVED DRUG PRODUCT: GEMCITABINE HYDROCHLORIDE
Active Ingredient: GEMCITABINE HYDROCHLORIDE
Strength: EQ 2GM BASE/VIAL
Dosage Form/Route: INJECTABLE;INJECTION
Application: A202997 | Product #001 | TE Code: AP
Applicant: DR REDDYS LABORATORIES LTD
Approved: May 7, 2013 | RLD: No | RS: No | Type: RX